FAERS Safety Report 17223068 (Version 4)
Quarter: 2020Q3

REPORT INFORMATION
  Report Type: Spontaneous
  Country: US (occurrence: US)
  Receive Date: 20200102
  Receipt Date: 20200813
  Transmission Date: 20201102
  Serious: No
  Sender: FDA-Public Use
  Company Number: US-BRISTOL-MYERS SQUIBB COMPANY-BMS-2019-125275

PATIENT
  Sex: Male
  Weight: 111.13 kg

DRUGS (1)
  1. SPRYCEL [Suspect]
     Active Substance: DASATINIB
     Indication: PRODUCT USED FOR UNKNOWN INDICATION
     Dosage: 100MG, 1 TABLET EVERY DAY
     Route: 048
     Dates: start: 20190122

REACTIONS (2)
  - Product dose omission issue [Unknown]
  - Dizziness [Recovered/Resolved]
